FAERS Safety Report 25734892 (Version 1)
Quarter: 2025Q3

REPORT INFORMATION
  Report Type: Spontaneous
  Country: EU (occurrence: EU)
  Receive Date: 20250828
  Receipt Date: 20250828
  Transmission Date: 20251021
  Serious: Yes (Congenital Anomaly, Other)
  Sender: CHEPLAPHARM
  Company Number: None

PATIENT
  Age: 0 Year

DRUGS (4)
  1. QUETIAPINE [Suspect]
     Active Substance: QUETIAPINE
     Indication: Bipolar disorder
     Dosage: DAILY DOSE: 50 MILLIGRAM
     Route: 064
     Dates: end: 20250313
  2. SERTRALINE HYDROCHLORIDE [Suspect]
     Active Substance: SERTRALINE HYDROCHLORIDE
     Indication: Bipolar disorder
     Dosage: DAILY DOSE: 50 MILLIGRAM
     Route: 064
     Dates: end: 20250313
  3. OXAZEPAM [Suspect]
     Active Substance: OXAZEPAM
     Indication: Bipolar disorder
     Dosage: DAILY DOSE: 50 MILLIGRAM
     Route: 064
     Dates: end: 20250313
  4. ZOPICLONE [Suspect]
     Active Substance: ZOPICLONE

REACTIONS (3)
  - Neonatal respiratory distress syndrome [Recovered/Resolved]
  - Bradycardia neonatal [Unknown]
  - Foetal exposure during pregnancy [Recovered/Resolved]

NARRATIVE: CASE EVENT DATE: 20250313
